FAERS Safety Report 17151736 (Version 1)
Quarter: 2019Q4

REPORT INFORMATION
  Report Type: Spontaneous
  Country: US (occurrence: US)
  Receive Date: 20191212
  Receipt Date: 20191212
  Transmission Date: 20200122
  Serious: Yes (Disabling)
  Sender: FDA-Public Use
  Company Number: None

PATIENT
  Age: 62 Year
  Weight: 103.5 kg

DRUGS (11)
  1. AZITHROMYCIN ANHYDROUS. [Suspect]
     Active Substance: AZITHROMYCIN ANHYDROUS
     Indication: BRONCHITIS
     Dosage: ?          QUANTITY:12 TABLET(S);?
     Route: 048
     Dates: start: 20191130, end: 20191209
  2. CANE [Concomitant]
  3. ESTRIOL [Concomitant]
     Active Substance: ESTRIOL
  4. AZITHROMYCIN ANHYDROUS. [Suspect]
     Active Substance: AZITHROMYCIN ANHYDROUS
     Indication: UPPER RESPIRATORY TRACT INFECTION
     Dosage: ?          QUANTITY:12 TABLET(S);?
     Route: 048
     Dates: start: 20191130, end: 20191209
  5. AZITHROMYCIN ANHYDROUS. [Suspect]
     Active Substance: AZITHROMYCIN ANHYDROUS
     Indication: LOWER RESPIRATORY TRACT INFECTION
     Dosage: ?          QUANTITY:12 TABLET(S);?
     Route: 048
     Dates: start: 20191130, end: 20191209
  6. ESTRADIOL. [Concomitant]
     Active Substance: ESTRADIOL
  7. KEPPRA [Concomitant]
     Active Substance: LEVETIRACETAM
  8. ALBUTEROL. [Concomitant]
     Active Substance: ALBUTEROL
  9. NAPROSYN [Concomitant]
     Active Substance: NAPROXEN
  10. WHEELCHAIR [Concomitant]
     Active Substance: DEVICE
  11. TENS [Concomitant]

REACTIONS (11)
  - Dyspnoea [None]
  - Disturbance in attention [None]
  - Gait disturbance [None]
  - Ligament pain [None]
  - Somnolence [None]
  - Anxiety [None]
  - Irritability [None]
  - Insomnia [None]
  - Tendon pain [None]
  - Epicondylitis [None]
  - Amnesia [None]

NARRATIVE: CASE EVENT DATE: 20191210
